FAERS Safety Report 11776936 (Version 1)
Quarter: 2015Q4

REPORT INFORMATION
  Report Type: Spontaneous
  Country: US (occurrence: None)
  Receive Date: 20151124
  Receipt Date: 20151124
  Transmission Date: 20160304
  Serious: Yes (Death)
  Sender: FDA-Public Use
  Company Number: None

PATIENT
  Age: 57 Year
  Sex: Female
  Weight: 106 kg

DRUGS (1)
  1. PROPOFOL. [Suspect]
     Active Substance: PROPOFOL
     Indication: SEDATION
     Dosage: TITRATE TO RASS OF 0  CONTINOUSLY
     Route: 042
     Dates: start: 20151007

REACTIONS (4)
  - Hypotension [None]
  - Acute kidney injury [None]
  - Respiratory depression [None]
  - Rhabdomyolysis [None]

NARRATIVE: CASE EVENT DATE: 20151007
